FAERS Safety Report 17980928 (Version 2)
Quarter: 2020Q3

REPORT INFORMATION
  Report Type: Spontaneous
  Country: DE (occurrence: DE)
  Receive Date: 20200704
  Receipt Date: 20200714
  Transmission Date: 20201103
  Serious: Yes (Congenital Anomaly, Other)
  Sender: FDA-Public Use
  Company Number: DE-TORRENT-00017923

PATIENT
  Sex: Female
  Weight: 2 kg

DRUGS (3)
  1. CITALOPRAM [Suspect]
     Active Substance: CITALOPRAM HYDROBROMIDE
     Indication: DEPRESSION
     Dosage: 3/4TH OF TABLET, 22.5 MG/D (15)
     Route: 064
     Dates: start: 20181119, end: 20190810
  2. COPAXONE [Suspect]
     Active Substance: GLATIRAMER ACETATE
     Indication: MULTIPLE SCLEROSIS
     Dosage: 20 [MG/D (3X/WK)] 3 SEPARATED DOSES
     Route: 064
     Dates: start: 20181119, end: 20190810
  3. SPASMEX [Concomitant]
     Indication: MULTIPLE SCLEROSIS
     Dosage: 30 [MG/D (30?0?0) ]
     Route: 064
     Dates: start: 20181119, end: 20190206

REACTIONS (5)
  - Kinematic imbalances due to suboccipital strain [Recovered/Resolved]
  - Wrong technique in product usage process [Unknown]
  - Foetal exposure during pregnancy [Unknown]
  - Hypotonia [Unknown]
  - Infantile haemangioma [Unknown]

NARRATIVE: CASE EVENT DATE: 20181119
